FAERS Safety Report 6774158-3 (Version None)
Quarter: 2010Q2

REPORT INFORMATION
  Report Type: 
  Country: None (occurrence: None)
  Receive Date: 20100617
  Receipt Date: 20100607
  Transmission Date: 20101027
  Serious: Yes (Other)
  Sender: FDA-Public Use
  Company Number: CN-NOVOPROD-309676

PATIENT
  Age: 56 Year
  Sex: Male
  Weight: 70 kg

DRUGS (2)
  1. NOVOLIN R [Suspect]
     Indication: DIABETES MELLITUS
     Dosage: 18IU IN THE MORNING, 13IU AT NIGHT
  2. NOVOMIX 30 [Suspect]
     Indication: DIABETES MELLITUS
     Dosage: UNK

REACTIONS (4)
  - INJECTION SITE RASH [None]
  - LOSS OF CONSCIOUSNESS [None]
  - PRURITUS [None]
  - PRURITUS GENERALISED [None]
